FAERS Safety Report 7074832-8 (Version None)
Quarter: 2010Q4

REPORT INFORMATION
  Report Type: 
  Country: None (occurrence: None)
  Receive Date: 20101029
  Receipt Date: 20101014
  Transmission Date: 20110411
  Serious: No
  Sender: FDA-Public Use
  Company Number: CA-ELI_LILLY_AND_COMPANY-CA201010003126

PATIENT
  Sex: Female

DRUGS (12)
  1. ZYPREXA [Suspect]
     Dosage: 15 MG, EACH EVENING
     Route: 048
  2. ZYPREXA [Suspect]
     Dosage: 20 MG, UNK
  3. ZYPREXA [Suspect]
     Dosage: 12.5 MG, UNK
  4. ZYPREXA [Suspect]
     Dosage: 10 MG, UNK
  5. ZYPREXA [Suspect]
     Dosage: 5 MG, EACH EVENING
     Route: 048
  6. ZYPREXA [Suspect]
     Dosage: 7.5 MG, EACH EVENING
     Route: 048
  7. QUETIAPINE [Concomitant]
  8. RISPERIDONE [Concomitant]
  9. KETODERM [Concomitant]
  10. SANDOZ TOPIRAMATE [Concomitant]
  11. BENZTROPINE MESYLATE [Concomitant]
  12. ARTHROTEC [Concomitant]

REACTIONS (11)
  - BLOOD CHOLESTEROL INCREASED [None]
  - BLOOD GLUCOSE INCREASED [None]
  - BLOOD TRIGLYCERIDES INCREASED [None]
  - DRUG INEFFECTIVE [None]
  - GLUCOSE TOLERANCE IMPAIRED [None]
  - NEUTROPHIL COUNT DECREASED [None]
  - RED BLOOD CELL COUNT DECREASED [None]
  - SEDATION [None]
  - TYPE 2 DIABETES MELLITUS [None]
  - WEIGHT INCREASED [None]
  - WHITE BLOOD CELL COUNT DECREASED [None]
